FAERS Safety Report 13775921 (Version 1)
Quarter: 2017Q3

REPORT INFORMATION
  Report Type: Report from Study
  Country: US (occurrence: US)
  Receive Date: 20170720
  Receipt Date: 20170720
  Transmission Date: 20171127
  Serious: Yes (Other)
  Sender: FDA-Public Use
  Company Number: US-EMD SERONO-E2B_80075337

PATIENT
  Sex: Female

DRUGS (1)
  1. REBIF [Suspect]
     Active Substance: INTERFERON BETA-1A
     Indication: PRODUCT USED FOR UNKNOWN INDICATION
     Route: 058
     Dates: start: 20130123

REACTIONS (6)
  - Chills [Not Recovered/Not Resolved]
  - Drug dose omission [Unknown]
  - Uterine disorder [Unknown]
  - Hot flush [Unknown]
  - Pyrexia [Unknown]
  - Hyperhidrosis [Not Recovered/Not Resolved]
